FAERS Safety Report 19991479 (Version 5)
Quarter: 2022Q2

REPORT INFORMATION
  Report Type: Report from Study
  Country: CO (occurrence: CO)
  Receive Date: 20211025
  Receipt Date: 20220514
  Transmission Date: 20220721
  Serious: Yes (Hospitalization, Other)
  Sender: FDA-Public Use
  Company Number: CO-AMGEN-COLSL2021079731

PATIENT
  Age: 55 Year
  Sex: Male
  Weight: 64 kg

DRUGS (1)
  1. ADALIMUMAB [Suspect]
     Active Substance: ADALIMUMAB
     Indication: Psoriatic arthropathy
     Dosage: 40 MILLIGRAM, Q2WK
     Route: 058
     Dates: start: 20201027

REACTIONS (8)
  - Pneumonia [Recovered/Resolved]
  - Weight increased [Not Recovered/Not Resolved]
  - Creatinine urine increased [Not Recovered/Not Resolved]
  - Pain in extremity [Recovering/Resolving]
  - Joint swelling [Not Recovered/Not Resolved]
  - Skin ulcer [Not Recovered/Not Resolved]
  - Muscle injury [Not Recovered/Not Resolved]
  - Thyroid disorder [Not Recovered/Not Resolved]

NARRATIVE: CASE EVENT DATE: 20211205
